FAERS Safety Report 15715126 (Version 1)
Quarter: 2018Q4

REPORT INFORMATION
  Report Type: Spontaneous
  Country: BR (occurrence: BR)
  Receive Date: 20181212
  Receipt Date: 20181212
  Transmission Date: 20190205
  Serious: Yes (Other)
  Sender: FDA-Public Use
  Company Number: BR-PFIZER INC-2018501885

PATIENT
  Age: 70 Year
  Sex: Female

DRUGS (1)
  1. XALATAN [Suspect]
     Active Substance: LATANOPROST
     Dosage: UNK
     Dates: start: 2008

REACTIONS (6)
  - Cataract [Unknown]
  - Eye pain [Not Recovered/Not Resolved]
  - Stress [Unknown]
  - Glaucoma [Unknown]
  - Eye pruritus [Not Recovered/Not Resolved]
  - Malaise [Unknown]
